FAERS Safety Report 24254064 (Version 1)
Quarter: 2024Q3

REPORT INFORMATION
  Report Type: Report from Study
  Country: GR (occurrence: GR)
  Receive Date: 20240827
  Receipt Date: 20240827
  Transmission Date: 20241016
  Serious: Yes (Death)
  Sender: MYLAN
  Company Number: GR-MYLANLABS-2024M1078903

PATIENT
  Sex: Female

DRUGS (3)
  1. EPIRUBICIN [Suspect]
     Active Substance: EPIRUBICIN
     Indication: Breast cancer
     Dosage: 75 MILLIGRAM/SQ. METER, BIWEEKLY (A TOTAL OF FOUR CYCLES SCHEDULED)
     Route: 065
  2. DOCETAXEL [Suspect]
     Active Substance: DOCETAXEL\DOCETAXEL ANHYDROUS
     Indication: Breast cancer
     Dosage: 100 MILLIGRAM/SQ. METER, Q3W, CYCLE
     Route: 065
  3. CYCLOPHOSPHAMIDE [Suspect]
     Active Substance: CYCLOPHOSPHAMIDE
     Indication: Breast cancer
     Dosage: 600 MILLIGRAM/SQ. METER, BIWEEKLY (A TOTAL OF FOUR CYCLES SCHEDULED)
     Route: 065

REACTIONS (1)
  - Myocardial infarction [Fatal]
